FAERS Safety Report 8268550-8 (Version None)
Quarter: 2012Q2

REPORT INFORMATION
  Report Type: 
  Country: None (occurrence: None)
  Receive Date: 20120409
  Receipt Date: 20120326
  Transmission Date: 20120825
  Serious: Yes (Other)
  Sender: FDA-Public Use
  Company Number: DE-CELGENEUS-062-21880-12030495

PATIENT
  Age: 72 Year
  Sex: Female
  Weight: 63.2 kg

DRUGS (11)
  1. TILIDINE [Concomitant]
  2. DIPYRONE TAB [Concomitant]
     Route: 065
  3. REVLIMID [Suspect]
     Dosage: 25 MILLIGRAM
     Route: 048
     Dates: start: 20111003, end: 20120305
  4. DEXAMETHASONE [Suspect]
     Route: 065
  5. CORTISONE [Concomitant]
     Route: 065
  6. CANDESARTAN CILEXETIL [Concomitant]
     Route: 065
  7. PHENPROCOUMON [Concomitant]
     Route: 065
  8. METOPROLOL TARTRATE [Concomitant]
     Route: 065
  9. RANITIDINE [Concomitant]
     Route: 050
  10. ANALGESICS [Concomitant]
     Route: 065
  11. HYDROCHLOROTHIAZIDE [Concomitant]
     Route: 065

REACTIONS (6)
  - ASTHENIA [None]
  - CARDIAC FAILURE [None]
  - DYSGEUSIA [None]
  - BLOOD COUNT ABNORMAL [None]
  - HYPERHIDROSIS [None]
  - CHEST PAIN [None]
